FAERS Safety Report 11117259 (Version 2)
Quarter: 2015Q2

REPORT INFORMATION
  Report Type: Spontaneous
  Country: IT (occurrence: IT)
  Receive Date: 20150515
  Receipt Date: 20150525
  Transmission Date: 20150821
  Serious: Yes (Life-Threatening)
  Sender: FDA-Public Use
  Company Number: IT-ASTRAZENECA-2015SE44944

PATIENT
  Age: 24582 Day
  Sex: Female

DRUGS (6)
  1. DELAPRIDE [Suspect]
     Active Substance: DELAPRIL HYDROCHLORIDE\INDAPAMIDE
     Indication: SUICIDE ATTEMPT
     Dosage: 30 MG + 2.5 MG TABLETS
     Route: 048
     Dates: start: 20150424, end: 20150424
  2. DELAPRIDE [Suspect]
     Active Substance: DELAPRIL HYDROCHLORIDE\INDAPAMIDE
     Indication: HYPERTENSION
     Dosage: 30 MG + 2.5 MG TABLETS
     Route: 048
     Dates: start: 20150424, end: 20150424
  3. SEROQUEL [Suspect]
     Active Substance: QUETIAPINE FUMARATE
     Indication: SUICIDE ATTEMPT
     Route: 048
     Dates: start: 20150424, end: 20150424
  4. EN [Suspect]
     Active Substance: DELORAZEPAM
     Indication: SUICIDE ATTEMPT
     Dosage: 1 MG/ML ORAL DROPS, SOLUTION
     Route: 048
     Dates: start: 20150424, end: 20150424
  5. SEROQUEL [Suspect]
     Active Substance: QUETIAPINE FUMARATE
     Indication: PSYCHOTIC DISORDER
     Route: 048
     Dates: start: 20150424, end: 20150424
  6. EN [Suspect]
     Active Substance: DELORAZEPAM
     Indication: ANXIETY
     Dosage: 1 MG/ML ORAL DROPS, SOLUTION
     Route: 048
     Dates: start: 20150424, end: 20150424

REACTIONS (5)
  - Coma [Recovered/Resolved]
  - Cardio-respiratory arrest [Recovered/Resolved]
  - Intentional overdose [Recovered/Resolved]
  - Suicide attempt [Recovered/Resolved]
  - Hypotension [Recovered/Resolved]

NARRATIVE: CASE EVENT DATE: 20150424
